FAERS Safety Report 5121418-8 (Version None)
Quarter: 2006Q4

REPORT INFORMATION
  Report Type: 
  Country: None (occurrence: None)
  Receive Date: 20061002
  Receipt Date: 20060922
  Transmission Date: 20070319
  Serious: Yes (Hospitalization)
  Sender: FDA-Public Use
  Company Number: 2006S1000169

PATIENT
  Age: 48 Year
  Sex: Male
  Weight: 91.7 kg

DRUGS (8)
  1. CUBICIN [Suspect]
     Indication: BACTERIAL INFECTION
     Dosage: 500 MG; UNKNOWN; IV
     Route: 042
     Dates: start: 20060827, end: 20060828
  2. CUBICIN [Suspect]
     Indication: POSTOPERATIVE INFECTION
     Dosage: 500 MG; UNKNOWN; IV
     Route: 042
     Dates: start: 20060827, end: 20060828
  3. SIMVASTATIN [Concomitant]
  4. EFFEXOR [Concomitant]
  5. DEPAKOTE [Concomitant]
  6. CLARITIN [Concomitant]
  7. ACIPHEX [Concomitant]
  8. VANCOMYCIN [Concomitant]

REACTIONS (9)
  - BLISTER [None]
  - DRY SKIN [None]
  - EOSINOPHILIA [None]
  - ERYTHEMA MULTIFORME [None]
  - ORAL MUCOSAL BLISTERING [None]
  - PRURITUS [None]
  - RASH GENERALISED [None]
  - RASH PAPULAR [None]
  - SKIN EXFOLIATION [None]
